FAERS Safety Report 4389137-3 (Version None)
Quarter: 2004Q3

REPORT INFORMATION
  Report Type: 
  Country: None (occurrence: None)
  Receive Date: 20040702
  Receipt Date: 20030903
  Transmission Date: 20050211
  Serious: No
  Sender: FDA-Public Use
  Company Number: A03200301949

PATIENT
  Age: 30 Year
  Sex: Female
  Weight: 68.2 kg

DRUGS (2)
  1. PARNATE [Suspect]
     Indication: ILL-DEFINED DISORDER
     Dosage: 40MG TWICE PER DAY
     Route: 048
  2. AMBIEN [Suspect]
     Indication: INSOMNIA
     Route: 048

REACTIONS (6)
  - DEPRESSION [None]
  - DRUG INTERACTION [None]
  - DYSPHORIA [None]
  - INSOMNIA [None]
  - INTENTIONAL OVERDOSE [None]
  - TEARFULNESS [None]
